FAERS Safety Report 5939689-4 (Version None)
Quarter: 2008Q4

REPORT INFORMATION
  Report Type: 
  Country: None (occurrence: None)
  Receive Date: 20081030
  Receipt Date: 20081030
  Transmission Date: 20090506
  Serious: Yes (Hospitalization, Other)
  Sender: FDA-Public Use
  Company Number: None

PATIENT
  Sex: Male
  Weight: 61.2356 kg

DRUGS (1)
  1. ACTONEL [Suspect]
     Indication: BONE DENSITOMETRY
     Dosage: 35 MG. ONCE-A-WEEK MOUTH
     Route: 048
     Dates: start: 20070101, end: 20080901

REACTIONS (1)
  - ATRIAL FIBRILLATION [None]
